FAERS Safety Report 6297978-0 (Version None)
Quarter: 2009Q3

REPORT INFORMATION
  Report Type: 
  Country: None (occurrence: None)
  Receive Date: 20090805
  Receipt Date: 20090729
  Transmission Date: 20100115
  Serious: Yes (Hospitalization)
  Sender: FDA-Public Use
  Company Number: A0800473A

PATIENT
  Age: 64 Year
  Sex: Female

DRUGS (3)
  1. COMBIVIR [Suspect]
     Indication: DRUG USE FOR UNKNOWN INDICATION
     Route: 048
  2. REVLIMID [Suspect]
     Route: 048
     Dates: start: 20081210, end: 20090323
  3. VIRAMUNE [Concomitant]
     Dosage: 200MG TWICE PER DAY

REACTIONS (6)
  - ANAEMIA [None]
  - ASTHENIA [None]
  - DEEP VEIN THROMBOSIS [None]
  - FATIGUE [None]
  - OEDEMA PERIPHERAL [None]
  - PAIN IN EXTREMITY [None]
